FAERS Safety Report 8131954-8 (Version None)
Quarter: 2012Q1

REPORT INFORMATION
  Report Type: 
  Country: None (occurrence: None)
  Receive Date: 20120208
  Receipt Date: 20120130
  Transmission Date: 20120608
  Serious: Yes (Disabling, Other)
  Sender: FDA-Public Use
  Company Number: AUR-APL-2012-00800

PATIENT
  Age: 41 Year
  Sex: Female
  Weight: 72.11 kg

DRUGS (4)
  1. PRAVACHOL [Concomitant]
  2. TYSABRI [Concomitant]
  3. TOVIAZ [Concomitant]
  4. VENLAFAXINE [Suspect]
     Indication: DEPRESSION
     Dosage: (75 MG, 1 D)
     Dates: start: 20111008, end: 20120101

REACTIONS (7)
  - DEPRESSION [None]
  - THINKING ABNORMAL [None]
  - CONDITION AGGRAVATED [None]
  - BEDRIDDEN [None]
  - SUICIDAL IDEATION [None]
  - AGITATION [None]
  - MULTIPLE SCLEROSIS [None]
